FAERS Safety Report 23551302 (Version 1)
Quarter: 2024Q1

REPORT INFORMATION
  Report Type: Spontaneous
  Country: CA (occurrence: CA)
  Receive Date: 20240222
  Receipt Date: 20240222
  Transmission Date: 20240409
  Serious: Yes (Hospitalization)
  Sender: FDA-Public Use
  Company Number: CA-TEVA-VS-3158864

PATIENT
  Age: 94 Year
  Sex: Male

DRUGS (1)
  1. AMIODARONE [Suspect]
     Active Substance: AMIODARONE
     Route: 065

REACTIONS (5)
  - Aortic stenosis [Recovering/Resolving]
  - Atrioventricular block first degree [Recovering/Resolving]
  - Bradycardia [Recovering/Resolving]
  - Electrocardiogram PR prolongation [Recovering/Resolving]
  - Syncope [Recovering/Resolving]
